FAERS Safety Report 6638000-3 (Version None)
Quarter: 2010Q1

REPORT INFORMATION
  Report Type: 
  Country: None (occurrence: None)
  Receive Date: 20100301
  Receipt Date: 20081203
  Transmission Date: 20100710
  Serious: Yes (Life-Threatening)
  Sender: FDA-Public Use
  Company Number: RB-7010-2008

PATIENT
  Age: 69 Year
  Sex: Male

DRUGS (1)
  1. SUBOXONE [Suspect]
     Indication: DRUG DEPENDENCE
     Dosage: 2 MG Q4H SUBLINGUAL
     Route: 060
     Dates: start: 20081203, end: 20081203

REACTIONS (6)
  - ANAPHYLACTIC REACTION [None]
  - CARDIAC ARREST [None]
  - CHILLS [None]
  - NAUSEA [None]
  - NERVOUSNESS [None]
  - PYREXIA [None]
